FAERS Safety Report 5133859-3 (Version None)
Quarter: 2006Q4

REPORT INFORMATION
  Report Type: 
  Country: None (occurrence: None)
  Receive Date: 20061018
  Receipt Date: 20060927
  Transmission Date: 20070319
  Serious: Yes (Other)
  Sender: FDA-Public Use
  Company Number: US200609007072

PATIENT
  Sex: Female

DRUGS (1)
  1. CYMBALTA [Suspect]

REACTIONS (3)
  - ANAESTHESIA [None]
  - MUSCULOSKELETAL STIFFNESS [None]
  - SURGERY [None]
